FAERS Safety Report 7692920-X (Version None)
Quarter: 2011Q3

REPORT INFORMATION
  Report Type: 
  Country: None (occurrence: None)
  Receive Date: 20110816
  Receipt Date: 20110803
  Transmission Date: 20111222
  Serious: Yes (Hospitalization)
  Sender: FDA-Public Use
  Company Number: LTI2011A00235

PATIENT
  Age: 64 Year
  Sex: Male

DRUGS (6)
  1. CELECTOL [Suspect]
     Route: 048
     Dates: start: 20080101
  2. PIOGLITAZONE HYDROCHLORIDE/METFORMIN HYDROCHLORIDE [Suspect]
     Indication: TYPE 2 DIABETES MELLITUS
     Route: 048
     Dates: start: 20080131, end: 20110610
  3. NOVONORM (REPAGLINIDE) [Suspect]
     Route: 048
     Dates: start: 20080131
  4. IRBESARTAN [Suspect]
     Dosage: 75 MG (75 MG, 1 IN 1 D)
     Route: 048
     Dates: start: 20080101
  5. SIMVASTATIN [Suspect]
     Dosage: 10 MG (10 MG)
     Route: 048
     Dates: start: 20080101
  6. ASPIRIN [Suspect]
     Dosage: 160 MG(160 MG)
     Route: 048
     Dates: start: 20080101

REACTIONS (2)
  - BLADDER NEOPLASM [None]
  - HAEMATURIA [None]
